FAERS Safety Report 5720452-4 (Version None)
Quarter: 2008Q2

REPORT INFORMATION
  Report Type: 
  Country: None (occurrence: None)
  Receive Date: 20080428
  Receipt Date: 20080416
  Transmission Date: 20081010
  Serious: Yes (Other)
  Sender: FDA-Public Use
  Company Number: US-PFIZER INC-2008034860

PATIENT
  Sex: Female

DRUGS (4)
  1. LYRICA [Suspect]
     Indication: FIBROMYALGIA
  2. ULTRAM [Concomitant]
  3. CELEBREX [Concomitant]
  4. GABAPENTIN [Concomitant]

REACTIONS (1)
  - CEREBROVASCULAR ACCIDENT [None]
